FAERS Safety Report 9940785 (Version 1)
Quarter: 2014Q1

REPORT INFORMATION
  Report Type: Spontaneous
  Country: US (occurrence: US)
  Receive Date: 20140303
  Receipt Date: 20140303
  Transmission Date: 20141002
  Serious: No
  Sender: FDA-Public Use
  Company Number: US-PFIZER INC-2014058418

PATIENT
  Age: 82 Year
  Sex: Female
  Weight: 63.49 kg

DRUGS (2)
  1. AMIODARONE HCL [Suspect]
     Indication: ATRIAL FIBRILLATION
     Dosage: UNK
  2. ELIQUIS [Concomitant]
     Indication: ATRIAL FIBRILLATION
     Dosage: DAILY OR TWICE A DAY
     Dates: start: 201311

REACTIONS (2)
  - Malaise [Unknown]
  - Nausea [Unknown]
